FAERS Safety Report 5936219-8 (Version None)
Quarter: 2008Q4

REPORT INFORMATION
  Report Type: 
  Country: None (occurrence: None)
  Receive Date: 20081030
  Receipt Date: 20071022
  Transmission Date: 20090506
  Serious: No
  Sender: FDA-Public Use
  Company Number: A0683842A

PATIENT
  Sex: Female

DRUGS (4)
  1. SEREVENT [Suspect]
     Indication: DRUG USE FOR UNKNOWN INDICATION
     Dosage: 1PUFF TWICE PER DAY
     Route: 055
  2. NEXIUM [Concomitant]
  3. METOPROLOL TARTRATE [Concomitant]
  4. VICODIN [Concomitant]

REACTIONS (1)
  - PALPITATIONS [None]
